FAERS Safety Report 8984808 (Version 2)
Quarter: 2013Q2

REPORT INFORMATION
  Report Type: Report from Study
  Country: JP (occurrence: JP)
  Receive Date: 20121226
  Receipt Date: 20130418
  Transmission Date: 20140414
  Serious: Yes (Death, Hospitalization)
  Sender: FDA-Public Use
  Company Number: PHHY2011JP17470

PATIENT
  Age: 78 Year
  Sex: Female

DRUGS (18)
  1. AFINITOR [Suspect]
     Indication: METASTATIC RENAL CELL CARCINOMA
     Dosage: 10 MG, DAILY
     Route: 048
     Dates: start: 20101225, end: 20110302
  2. AFINITOR [Suspect]
     Dosage: 5 MG, DAILY
     Route: 048
     Dates: start: 20110329, end: 20110417
  3. AFINITOR [Suspect]
     Dosage: 10 MG, QD
     Route: 048
     Dates: start: 20110418, end: 20110811
  4. AFINITOR [Suspect]
     Dosage: 5 MG, QD
     Route: 048
     Dates: start: 20110812, end: 20110831
  5. AFINITOR [Suspect]
     Dosage: 10 MG, QD
     Route: 048
     Dates: start: 20110901
  6. CORTRIL [Concomitant]
     Dosage: 40 MG, UNK
     Route: 048
  7. OLMETEC [Concomitant]
     Dosage: 20 MG, UNK
     Route: 048
  8. ARTIST [Concomitant]
     Dosage: 2.5 MG, UNK
     Route: 048
  9. LASIX [Concomitant]
     Dosage: 20 MG, UNK
     Route: 048
  10. EPLERENONE [Concomitant]
     Dosage: 50 MG, UNK
     Route: 048
  11. AMOBAN [Concomitant]
     Dosage: 10 MG, UNK
     Route: 048
  12. AMLODIN [Concomitant]
     Dosage: 5 MG, UNK
     Route: 048
  13. PASTARON [Concomitant]
  14. AZUNOL [Concomitant]
     Dates: start: 20101225
  15. ZOMETA [Concomitant]
     Indication: METASTATIC RENAL CELL CARCINOMA
     Route: 041
  16. SODIUM CHLORIDE [Concomitant]
     Indication: METASTATIC RENAL CELL CARCINOMA
     Route: 041
  17. MUCODYNE [Concomitant]
     Route: 048
     Dates: start: 20110521
  18. CALONAL [Concomitant]
     Route: 048
     Dates: start: 20110614

REACTIONS (5)
  - Metastatic renal cell carcinoma [Fatal]
  - Malignant neoplasm progression [Fatal]
  - Anaemia [Not Recovered/Not Resolved]
  - Pleural effusion [Recovering/Resolving]
  - Dyspnoea [Unknown]
